FAERS Safety Report 4356966-1 (Version None)
Quarter: 2004Q2

REPORT INFORMATION
  Report Type: 
  Country: None (occurrence: None)
  Receive Date: 20040507
  Receipt Date: 20040426
  Transmission Date: 20050107
  Serious: Yes (Other)
  Sender: FDA-Public Use
  Company Number: 2004US000480

PATIENT
  Age: 20 Year
  Sex: Male

DRUGS (3)
  1. AMBISOME [Suspect]
     Indication: COCCIDIOIDOMYCOSIS
     Dosage: 290.00 MG, UID/QD, INTRAVENOUS
     Route: 042
  2. LISINOPRIL [Concomitant]
  3. DIGOXIN [Concomitant]

REACTIONS (3)
  - COCCIDIOIDOMYCOSIS [None]
  - CONGESTIVE CARDIOMYOPATHY [None]
  - DRUG TOXICITY [None]
